FAERS Safety Report 4579586-2 (Version None)
Quarter: 2005Q1

REPORT INFORMATION
  Report Type: 
  Country: None (occurrence: None)
  Receive Date: 20050210
  Receipt Date: 20050126
  Transmission Date: 20050727
  Serious: Yes (Death, Hospitalization)
  Sender: FDA-Public Use
  Company Number: 2004AL000912

PATIENT
  Age: 46 Year
  Sex: Male

DRUGS (4)
  1. DIAZEPAM [Suspect]
     Dosage: PO
     Route: 048
  2. OXYCODONE (LONG-ACTING) [Suspect]
     Dosage: PO
     Route: 048
  3. AMPHETAMINE [Suspect]
     Dosage: PO
     Route: 048
  4. MARIJUANA [Suspect]
     Dosage: PO
     Route: 048

REACTIONS (10)
  - ANOXIC ENCEPHALOPATHY [None]
  - COMA [None]
  - DRUG ABUSER [None]
  - DRUG TOXICITY [None]
  - HEART RATE INCREASED [None]
  - LUNG CONSOLIDATION [None]
  - MULTIPLE DRUG OVERDOSE [None]
  - SUBARACHNOID HAEMORRHAGE [None]
  - THERAPY NON-RESPONDER [None]
  - VENTRICULAR FIBRILLATION [None]
